FAERS Safety Report 8204408-8 (Version None)
Quarter: 2012Q1

REPORT INFORMATION
  Report Type: 
  Country: None (occurrence: None)
  Receive Date: 20120313
  Receipt Date: 20120313
  Transmission Date: 20120608
  Serious: Yes (Other)
  Sender: FDA-Public Use
  Company Number: None

PATIENT
  Age: 25 Year
  Sex: Female
  Weight: 99.79 kg

DRUGS (1)
  1. LO LOESTRIN FE [Suspect]
     Indication: CONTRACEPTION
     Dosage: ONE TABLET
     Route: 048
     Dates: start: 20120108, end: 20120310

REACTIONS (2)
  - MENSTRUATION IRREGULAR [None]
  - MENORRHAGIA [None]
